FAERS Safety Report 9456818 (Version 2)
Quarter: 2013Q4

REPORT INFORMATION
  Report Type: Spontaneous
  Country: US (occurrence: US)
  Receive Date: 20130813
  Receipt Date: 20131119
  Transmission Date: 20140711
  Serious: Yes (Death, Hospitalization, Other)
  Sender: FDA-Public Use
  Company Number: US-CELGENEUS-163-21880-13081312

PATIENT
  Sex: Female

DRUGS (8)
  1. REVLIMID [Suspect]
     Indication: AMYLOIDOSIS
     Dosage: 15 MILLIGRAM
     Route: 048
     Dates: start: 201209, end: 2012
  2. REVLIMID [Suspect]
     Indication: PLASMA CELL MYELOMA
  3. ASPIRIN [Concomitant]
     Indication: PRODUCT USED FOR UNKNOWN INDICATION
     Dosage: 81 MILLIGRAM
     Route: 065
  4. TACROLIMUS [Concomitant]
     Indication: TRANSPLANT
     Route: 065
     Dates: start: 20120624
  5. VELCADE [Concomitant]
     Indication: AMYLOIDOSIS
     Route: 058
     Dates: start: 201207
  6. VELCADE [Concomitant]
     Indication: PLASMA CELL MYELOMA
  7. DEXAMETHASONE [Concomitant]
     Indication: AMYLOIDOSIS
     Route: 048
     Dates: start: 201207
  8. DEXAMETHASONE [Concomitant]
     Indication: PLASMA CELL MYELOMA

REACTIONS (7)
  - Heart transplant rejection [Fatal]
  - Sepsis [Fatal]
  - Kidney transplant rejection [Unknown]
  - Lung infiltration [Unknown]
  - Pyuria [Unknown]
  - Pyrexia [Unknown]
  - Productive cough [Unknown]
